FAERS Safety Report 9709656 (Version 1)
Quarter: 2013Q4

REPORT INFORMATION
  Report Type: Spontaneous
  Country: PL (occurrence: PL)
  Receive Date: 20131126
  Receipt Date: 20131126
  Transmission Date: 20140711
  Serious: Yes (Death, Other)
  Sender: FDA-Public Use
  Company Number: PHHY2013PL133555

PATIENT
  Age: 56 Year
  Sex: Male

DRUGS (7)
  1. SANDOSTATIN LAR [Suspect]
     Indication: PANCREATIC NEUROENDOCRINE TUMOUR
     Dosage: 30 MG, UNK
  2. 5 FLUORO URACIL [Concomitant]
     Dosage: UNK UKN, UNK
  3. RADIOTHERAPY [Concomitant]
     Dosage: UNK UKN, UNK
     Dates: start: 201002
  4. RADIOTHERAPY [Concomitant]
     Dosage: UNK UKN, UNK
     Dates: start: 201004
  5. RADIOTHERAPY [Concomitant]
     Dosage: UNK
     Dates: start: 201009
  6. CHEMOTHERAPEUTICS [Concomitant]
     Dosage: UNK UKN, UNK
  7. CALCIUM FOLINATE [Concomitant]
     Dosage: UNK UKN, UNK

REACTIONS (9)
  - Death [Fatal]
  - Injury [Unknown]
  - Malignant neoplasm progression [Unknown]
  - Hepatomegaly [Unknown]
  - Hepatic failure [Unknown]
  - Gamma-glutamyltransferase increased [Unknown]
  - Blood alkaline phosphatase increased [Unknown]
  - Bone pain [Unknown]
  - Flushing [Unknown]
